FAERS Safety Report 12201149 (Version 1)
Quarter: 2016Q1

REPORT INFORMATION
  Report Type: Spontaneous
  Country: US (occurrence: US)
  Receive Date: 20160322
  Receipt Date: 20160322
  Transmission Date: 20160526
  Serious: No
  Sender: FDA-Public Use
  Company Number: US-SA-2015SA096801

PATIENT
  Sex: Female

DRUGS (3)
  1. NASACORT ALLERGY 24HR [Suspect]
     Active Substance: TRIAMCINOLONE ACETONIDE
     Indication: NASAL CONGESTION
     Dosage: TAKING IT FOR 3 OR 4 DAYS BUT ONLY USING 1 SPRAY
     Route: 065
  2. NASACORT ALLERGY 24HR [Suspect]
     Active Substance: TRIAMCINOLONE ACETONIDE
     Indication: INFLAMMATION
     Dosage: TAKING IT FOR 3 OR 4 DAYS BUT ONLY USING 1 SPRAY
     Route: 065
  3. NASACORT ALLERGY 24HR [Suspect]
     Active Substance: TRIAMCINOLONE ACETONIDE
     Indication: PAIN
     Dosage: TAKING IT FOR 3 OR 4 DAYS BUT ONLY USING 1 SPRAY
     Route: 065

REACTIONS (1)
  - Drug ineffective [Unknown]
